FAERS Safety Report 19145602 (Version 3)
Quarter: 2021Q2

REPORT INFORMATION
  Report Type: Spontaneous
  Country: CN (occurrence: CN)
  Receive Date: 20210416
  Receipt Date: 20210430
  Transmission Date: 20210717
  Serious: Yes (Hospitalization, Other)
  Sender: FDA-Public Use
  Company Number: CN-SA-2021SA115593

PATIENT
  Age: 69 Year
  Sex: Male

DRUGS (4)
  1. HEPARIN [Concomitant]
     Active Substance: HEPARIN SODIUM
     Indication: CAROTID ARTERY STENT INSERTION
     Dosage: 5000 IU
     Route: 040
  2. PLAVIX [Suspect]
     Active Substance: CLOPIDOGREL BISULFATE
     Indication: CAROTID ARTERY STENT INSERTION
     Dosage: 75 MG
  3. ATORVASTATIN [Concomitant]
     Active Substance: ATORVASTATIN
     Indication: CAROTID ARTERY STENT INSERTION
     Dosage: 20 MG
  4. ASPIRIN [ACETYLSALICYLIC ACID] [Concomitant]
     Active Substance: ASPIRIN
     Indication: CAROTID ARTERY STENT INSERTION
     Dosage: 100 MG

REACTIONS (7)
  - Hemiplegia [Recovered/Resolved]
  - Lethargy [Recovered/Resolved]
  - Brain oedema [Recovered/Resolved]
  - Gaze palsy [Recovered/Resolved]
  - Drug resistance [Recovered/Resolved]
  - Aphasia [Recovered/Resolved]
  - Vascular stent thrombosis [Recovered/Resolved]
